FAERS Safety Report 4944315-7 (Version None)
Quarter: 2006Q1

REPORT INFORMATION
  Report Type: 
  Country: None (occurrence: None)
  Receive Date: 20060123
  Receipt Date: 20051003
  Transmission Date: 20060701
  Serious: No
  Sender: FDA-Public Use
  Company Number: 2005-BP-17578BP

PATIENT
  Sex: 0

DRUGS (2)
  1. APTIVUS [Suspect]
     Indication: HIV INFECTION
     Dosage: SEE TEXT (SEE TEXT, TPR/R 250/200 MG), PO
     Route: 048
  2. VIREAD [Concomitant]

REACTIONS (1)
  - BLOOD BILIRUBIN INCREASED [None]
